FAERS Safety Report 22362199 (Version 1)
Quarter: 2023Q2

REPORT INFORMATION
  Report Type: Spontaneous
  Country: US (occurrence: None)
  Receive Date: 20230524
  Receipt Date: 20230524
  Transmission Date: 20230721
  Serious: Yes (Other)
  Sender: FDA-Public Use
  Company Number: None

PATIENT
  Age: 84 Year
  Sex: Male
  Weight: 81.4 kg

DRUGS (1)
  1. REVLIMID [Suspect]
     Active Substance: LENALIDOMIDE
     Indication: Plasma cell myeloma
     Dosage: OTHER FREQUENCY : 21 DAYS;?
     Route: 048
     Dates: start: 20211018, end: 20230414

REACTIONS (2)
  - Neutropenia [None]
  - Therapy interrupted [None]

NARRATIVE: CASE EVENT DATE: 20230414
